FAERS Safety Report 17968635 (Version 1)
Quarter: 2020Q3

REPORT INFORMATION
  Report Type: Spontaneous
  Country: US (occurrence: US)
  Receive Date: 20200701
  Receipt Date: 20200701
  Transmission Date: 20201103
  Serious: Yes (Hospitalization)
  Sender: FDA-Public Use
  Company Number: None

PATIENT
  Age: 62 Year
  Sex: Male

DRUGS (7)
  1. HALOBETASOL 0.05% OINTMENT [Concomitant]
     Dates: start: 20200609
  2. BUMETANIDE 1MG TABLETS [Concomitant]
     Dates: start: 20200605
  3. ATORVASTATIN 80 MG TABLETS [Concomitant]
     Active Substance: ATORVASTATIN
     Dates: start: 20200605
  4. LOSARTAN 50MG TABLETS [Concomitant]
     Active Substance: LOSARTAN
     Dates: start: 20200605
  5. METOPROLOL SUCCINATE 50MG ER TABLETS [Concomitant]
     Dates: start: 20200605
  6. ENBREL [Suspect]
     Active Substance: ETANERCEPT
     Indication: PSORIASIS
     Dosage: ?          OTHER FREQUENCY:EVERY WEEK;?
     Route: 058
     Dates: start: 20190103
  7. OXYCODONE/APAP 5?325 MG TABLETS [Concomitant]
     Dates: start: 20200605

REACTIONS (1)
  - Vascular graft [None]

NARRATIVE: CASE EVENT DATE: 20200530
